FAERS Safety Report 4343340-7 (Version None)
Quarter: 2004Q1

REPORT INFORMATION
  Report Type: 
  Country: None (occurrence: None)
  Receive Date: 20040325
  Receipt Date: 20040220
  Transmission Date: 20041129
  Serious: No
  Sender: FDA-Public Use
  Company Number: USA040259878

PATIENT
  Age: 74 Year
  Sex: Female
  Weight: 69 kg

DRUGS (10)
  1. FORTEO [Suspect]
     Indication: OSTEOPOROSIS
     Dosage: 20 UG/1 DAY
     Dates: start: 20040216, end: 20040220
  2. SYNTHROID [Concomitant]
  3. SEROZONE (NEFAZODONE HYDROCHLORIDE) [Concomitant]
  4. ADVAIR DISKUS 100/50 [Concomitant]
  5. ROBAXIN [Concomitant]
  6. ALBUTEROL [Concomitant]
  7. OXYGEN [Concomitant]
  8. ATROVENT [Concomitant]
  9. RHINOCORT [Concomitant]
  10. TYLENOL [Concomitant]

REACTIONS (1)
  - OEDEMA PERIPHERAL [None]
